FAERS Safety Report 16938951 (Version 1)
Quarter: 2019Q4

REPORT INFORMATION
  Report Type: Spontaneous
  Country: US (occurrence: US)
  Receive Date: 20191020
  Receipt Date: 20191020
  Transmission Date: 20200122
  Serious: No
  Sender: FDA-Public Use
  Company Number: US-009507513-1910USA005878

PATIENT
  Age: 49 Year
  Sex: Female

DRUGS (2)
  1. M-M-R II [Suspect]
     Active Substance: MEASLES VIRUS STRAIN ENDERS^ ATTENUATED EDMONSTON LIVE ANTIGEN\MUMPS VIRUS STRAIN B LEVEL JERYL LYNN LIVE ANTIGEN\RUBELLA VIRUS STRAIN WISTAR RA 27/3 LIVE ANTIGEN
     Indication: PROPHYLAXIS
     Route: 061
     Dates: start: 20191003
  2. STERILE DILUENT (WATER) [Suspect]
     Active Substance: WATER
     Indication: PROPHYLAXIS
     Dosage: UNK
     Route: 061
     Dates: start: 20191003

REACTIONS (8)
  - Exposure via mucosa [Unknown]
  - Exposure via skin contact [Unknown]
  - Nasal congestion [Not Recovered/Not Resolved]
  - Syringe issue [Unknown]
  - Accidental exposure to product [Unknown]
  - Occupational exposure to product [Unknown]
  - Exposure via eye contact [Unknown]
  - Eye irritation [Not Recovered/Not Resolved]

NARRATIVE: CASE EVENT DATE: 20191003
